FAERS Safety Report 21469016 (Version 4)
Quarter: 2023Q1

REPORT INFORMATION
  Report Type: Spontaneous
  Country: IT (occurrence: IT)
  Receive Date: 20221018
  Receipt Date: 20230104
  Transmission Date: 20230418
  Serious: Yes (Other)
  Sender: FDA-Public Use
  Company Number: IT-MINISAL02-887716

PATIENT
  Age: 72 Year
  Sex: Female

DRUGS (3)
  1. ROSUVASTATIN CALCIUM [Suspect]
     Active Substance: ROSUVASTATIN CALCIUM
     Indication: Drug abuse
     Dosage: 140 MILLIGRAM
     Route: 048
     Dates: start: 20220401, end: 20220401
  2. ROSUVASTATIN CALCIUM [Suspect]
     Active Substance: ROSUVASTATIN CALCIUM
     Dosage: 140 MILLIGRAM
     Route: 048
     Dates: start: 20220831, end: 20220831
  3. TAPAZOLE [Suspect]
     Active Substance: METHIMAZOLE
     Indication: Drug abuse
     Dosage: 35 MILLIGRAM
     Route: 048
     Dates: start: 20220401, end: 20220401

REACTIONS (3)
  - Toxicity to various agents [Recovering/Resolving]
  - Drug abuse [Recovering/Resolving]
  - Vomiting [Recovering/Resolving]

NARRATIVE: CASE EVENT DATE: 20220831
